FAERS Safety Report 18589273 (Version 1)
Quarter: 2020Q4

REPORT INFORMATION
  Report Type: Spontaneous
  Country: CN (occurrence: CN)
  Receive Date: 20201208
  Receipt Date: 20201208
  Transmission Date: 20210114
  Serious: Yes (Other)
  Sender: FDA-Public Use
  Company Number: CN-LUPIN PHARMACEUTICALS INC.-2020-09908

PATIENT
  Sex: Female

DRUGS (6)
  1. CALCITRIOL. [Suspect]
     Active Substance: CALCITRIOL
     Dosage: 1 MICROGRAM, QD (CALCITRIOL 0.08 MICROG/KG DAILY )
     Route: 048
  2. CALCITRIOL. [Suspect]
     Active Substance: CALCITRIOL
     Indication: RICKETS
     Dosage: 0.25 MICROGRAM, QD (CALCITRIOL 0.028 MICROG/KG DAILY)
     Route: 048
  3. CALCIUM [Suspect]
     Active Substance: CALCIUM
     Indication: RICKETS
     Dosage: 500 MILLIGRAM, QD (500MG DAILY DIVIDED THREE TIMES A DAY)
     Route: 048
  4. CALCIUM [Suspect]
     Active Substance: CALCIUM
     Dosage: 900 MILLIGRAM, QD (78 MG/KG DAILY DIVIDED THREE TIMES A DAY)
     Route: 048
  5. CALCITRIOL. [Suspect]
     Active Substance: CALCITRIOL
     Dosage: 0.75 MICROGRAM, QD (CALCITRIOL 0.079 MICROG/KG DAILY)
     Route: 048
  6. CALCIUM [Suspect]
     Active Substance: CALCIUM
     Dosage: 700 MILLIGRAM, QD (75 MG/KG DAILY DIVIDED THREE TIMES A DAY)
     Route: 048

REACTIONS (2)
  - Off label use [Unknown]
  - Nephrocalcinosis [Unknown]
